FAERS Safety Report 10258633 (Version 1)
Quarter: 2014Q2

REPORT INFORMATION
  Report Type: Spontaneous
  Country: GB (occurrence: None)
  Receive Date: 20140623
  Receipt Date: 20140623
  Transmission Date: 20141212
  Serious: Yes (Life-Threatening, Hospitalization, Disabling, Other)
  Sender: FDA-Public Use
  Company Number: SYM-2014-22120

PATIENT
  Age: 54 Year
  Sex: Female

DRUGS (2)
  1. FLAGYL (METRONIDAZOLE) (METRONIDAZOLE) [Suspect]
     Indication: PRODUCT USED FOR UNKNOWN INDICATION
     Route: 048
     Dates: start: 20120314, end: 20140318
  2. PROZAC (FLUOXETINE HYDROCHLORIDE) (FLUOXETINE HYDROCHLORIDE) [Suspect]
     Indication: PRODUCT USED FOR UNKNOWN INDICATION
     Route: 048
     Dates: start: 20120314, end: 20120318

REACTIONS (10)
  - Serotonin syndrome [None]
  - Post-traumatic stress disorder [None]
  - Hypomania [None]
  - Fatigue [None]
  - Drug interaction [None]
  - Nausea [None]
  - Headache [None]
  - Coma [None]
  - Hypertension [None]
  - Myoclonus [None]
